FAERS Safety Report 21838804 (Version 1)
Quarter: 2023Q1

REPORT INFORMATION
  Report Type: Spontaneous
  Country: US (occurrence: None)
  Receive Date: 20230107
  Receipt Date: 20230107
  Transmission Date: 20230418
  Serious: Yes (Hospitalization)
  Sender: FDA-Public Use
  Company Number: None

PATIENT
  Age: 90 Year
  Sex: Male

DRUGS (1)
  1. WARFARIN SODIUM [Suspect]
     Active Substance: WARFARIN SODIUM
     Dates: start: 20221213

REACTIONS (4)
  - International normalised ratio increased [None]
  - Scalp haematoma [None]
  - Ear haemorrhage [None]
  - Fall [None]

NARRATIVE: CASE EVENT DATE: 20221213
